FAERS Safety Report 8918910 (Version 1)
Quarter: 2012Q4

REPORT INFORMATION
  Report Type: 
  Country: JP (occurrence: JP)
  Receive Date: 20121121
  Receipt Date: 20121121
  Transmission Date: 20130627
  Serious: Yes (Life-Threatening)
  Sender: FDA-Public Use
  Company Number: JP-EISAI INC-E3810-05842-SPO-JP

PATIENT
  Age: 74 Year
  Sex: Female
  Weight: 43 kg

DRUGS (16)
  1. PARIET (RABEPRAZOLE) [Suspect]
     Indication: GASTRIC ULCER
     Route: 048
     Dates: start: 20120809, end: 20120822
  2. YODEL-S [Concomitant]
     Indication: CONSTIPATION
     Route: 048
  3. THYRADIN S [Concomitant]
     Indication: THYROID FUNCTION DECREASED
     Route: 048
  4. MAGMITT [Concomitant]
     Indication: CONSTIPATION
     Route: 048
  5. MICAMLO [Concomitant]
     Indication: HYPERTENSION
     Route: 048
     Dates: start: 20110726
  6. ADONA [Concomitant]
     Indication: ANAPHYLACTOID PURPURA
     Route: 048
     Dates: start: 20120808
  7. TRANSAMIN [Concomitant]
     Indication: ANAPHYLACTOID PURPURA
     Route: 048
     Dates: start: 20120808
  8. U-PASTA [Concomitant]
     Indication: ANAPHYLACTOID PURPURA
     Dates: start: 20120809
  9. PREGABALIN [Concomitant]
     Indication: SPINAL COLUMN STENOSIS
     Route: 048
  10. FAMOTIDINE D [Concomitant]
     Indication: GASTRIC ULCER
     Route: 048
     Dates: start: 20120625
  11. HALFDIGOXIN-KY [Concomitant]
     Indication: ATRIAL FIBRILLATION
     Route: 048
  12. GLACTIV [Concomitant]
     Indication: DIABETES MELLITUS
     Route: 048
  13. LOXOPROFEN [Concomitant]
     Indication: SPINAL COLUMN STENOSIS
     Route: 048
  14. REBAMIPIDE [Concomitant]
     Indication: GASTRIC ULCER PROPHYLAXIS
     Route: 048
  15. VANCOMYCIN [Concomitant]
     Indication: INFECTION NOS
     Route: 042
     Dates: start: 20120820, end: 20120822
  16. VANCOMYCIN [Concomitant]
     Route: 042
     Dates: start: 20120808, end: 20120815

REACTIONS (1)
  - Hepatitis fulminant [Recovered/Resolved]
